FAERS Safety Report 10531708 (Version 2)
Quarter: 2015Q1

REPORT INFORMATION
  Report Type: Spontaneous
  Country: IT (occurrence: IT)
  Receive Date: 20141021
  Receipt Date: 20150218
  Transmission Date: 20150720
  Serious: Yes (Hospitalization)
  Sender: FDA-Public Use
  Company Number: IT-ABBVIE-14P-083-1297760-00

PATIENT
  Age: 42 Year
  Sex: Female

DRUGS (2)
  1. DEPAKENE [Suspect]
     Active Substance: VALPROIC ACID
     Indication: DRUG ABUSE
     Route: 048
     Dates: start: 20141014, end: 20141014
  2. RIVOTRIL [Suspect]
     Active Substance: CLONAZEPAM
     Indication: DRUG ABUSE
     Route: 048
     Dates: start: 20141014, end: 20141014

REACTIONS (3)
  - Bradyphrenia [Recovering/Resolving]
  - Drug abuse [Recovering/Resolving]
  - Bradykinesia [Recovering/Resolving]

NARRATIVE: CASE EVENT DATE: 20141014
